FAERS Safety Report 4761930-4 (Version None)
Quarter: 2005Q3

REPORT INFORMATION
  Report Type: 
  Country: None (occurrence: None)
  Receive Date: 20050831
  Receipt Date: 20040802
  Transmission Date: 20060218
  Serious: Yes (Hospitalization)
  Sender: FDA-Public Use
  Company Number: US-JNJFOC-20040306372

PATIENT
  Age: 41 Year
  Sex: Female

DRUGS (21)
  1. ORTHOCLONE OKT3 [Suspect]
     Indication: KIDNEY TRANSPLANT REJECTION
     Dates: start: 20040308, end: 20040320
  2. TYLENOL [Concomitant]
  3. NORVASC [Concomitant]
  4. CATAPRES [Concomitant]
  5. NEORAL [Concomitant]
  6. BENADRYL [Concomitant]
  7. MINOXIDIL [Concomitant]
  8. LOPRESSOR [Concomitant]
  9. LANTUS [Concomitant]
  10. CELLCEPT [Concomitant]
  11. PREDNISONE [Concomitant]
  12. METOPROLOL TARTRATE [Concomitant]
  13. SLIDING SCALE INSULIN (INSULIN) [Concomitant]
  14. UNASYN (UNACID) [Concomitant]
  15. REGULAR HUMAN INSULIN (INSULIN) [Concomitant]
  16. PROVENTIL [Concomitant]
  17. ADRENALIN IN OIL INJ [Concomitant]
  18. SOLU-CORTEF [Concomitant]
  19. ATIVAN [Concomitant]
  20. SOLU-MEDROL (METHYLPRENISOLONE SODIUM SUCCINATE) [Concomitant]
  21. ZOFRAN [Concomitant]

REACTIONS (7)
  - AGITATION [None]
  - CONFUSIONAL STATE [None]
  - DEPRESSION [None]
  - ENCEPHALOPATHY [None]
  - KLEBSIELLA INFECTION [None]
  - MENINGITIS ASEPTIC [None]
  - PYREXIA [None]
